FAERS Safety Report 10718107 (Version 1)
Quarter: 2015Q1

REPORT INFORMATION
  Report Type: Spontaneous
  Country: CN (occurrence: CN)
  Receive Date: 20150117
  Receipt Date: 20150117
  Transmission Date: 20150721
  Serious: Yes (Hospitalization)
  Sender: FDA-Public Use
  Company Number: PHHY2015CN004860

PATIENT
  Age: 34 Year
  Sex: Male
  Weight: 72.2 kg

DRUGS (1)
  1. LAMISIL [Suspect]
     Active Substance: TERBINAFINE HYDROCHLORIDE
     Indication: PSORIASIS
     Dosage: 0.25 G, QD
     Route: 048
     Dates: start: 20140626, end: 20140703

REACTIONS (2)
  - Impetigo [Recovered/Resolved]
  - Erythema [Recovered/Resolved]

NARRATIVE: CASE EVENT DATE: 20140703
